FAERS Safety Report 7879047-9 (Version None)
Quarter: 2011Q4

REPORT INFORMATION
  Report Type: 
  Country: None (occurrence: None)
  Receive Date: 20111101
  Receipt Date: 20111024
  Transmission Date: 20120403
  Serious: Yes (Hospitalization)
  Sender: FDA-Public Use
  Company Number: PHFR2011GB04817

PATIENT
  Sex: Female

DRUGS (2)
  1. AMISULPRIDE [Suspect]
     Route: 065
  2. CLOZARIL [Suspect]
     Indication: SCHIZOPHRENIA
     Route: 048
     Dates: start: 20041201, end: 20110831

REACTIONS (8)
  - DIARRHOEA [None]
  - COLITIS [None]
  - GASTRIC DISORDER [None]
  - POST PROCEDURAL INFECTION [None]
  - SEPSIS [None]
  - MALAISE [None]
  - VOMITING [None]
  - TACHYCARDIA [None]
